FAERS Safety Report 15356558 (Version 1)
Quarter: 2018Q3

REPORT INFORMATION
  Report Type: Spontaneous
  Country: DE (occurrence: DE)
  Receive Date: 20180906
  Receipt Date: 20180906
  Transmission Date: 20181010
  Serious: Yes (Other)
  Sender: FDA-Public Use
  Company Number: DE-ALLERGAN-1842966US

PATIENT
  Age: 31 Year
  Sex: Female

DRUGS (2)
  1. ESCITALOPRAM OXALATE ? BP [Suspect]
     Active Substance: ESCITALOPRAM OXALATE
     Dosage: 20MG/ML; ONE DROP
     Route: 065
     Dates: start: 20180822
  2. ESCITALOPRAM OXALATE ? BP [Suspect]
     Active Substance: ESCITALOPRAM OXALATE
     Indication: PRODUCT USED FOR UNKNOWN INDICATION
     Dosage: 20MG/ML; ONE DROP
     Route: 065
     Dates: start: 20180821

REACTIONS (5)
  - Delusion [Unknown]
  - Dizziness [Unknown]
  - Mania [Unknown]
  - Heart rate irregular [Unknown]
  - Headache [Unknown]
